FAERS Safety Report 9159665 (Version 1)
Quarter: 2013Q1

REPORT INFORMATION
  Report Type: Spontaneous
  Country: US (occurrence: US)
  Receive Date: 20130313
  Receipt Date: 20130313
  Transmission Date: 20140127
  Serious: No
  Sender: FDA-Public Use
  Company Number: US-PFIZER INC-2013081804

PATIENT
  Age: 27 Year
  Sex: Male
  Weight: 132 kg

DRUGS (2)
  1. PRISTIQ [Suspect]
     Indication: DEPRESSION
     Dosage: UNK,1X/DAY
     Dates: start: 2011
  2. PRISTIQ [Suspect]
     Dosage: UNK, 1X/DAY
     Dates: start: 20130306

REACTIONS (1)
  - Visual acuity reduced [Not Recovered/Not Resolved]
